FAERS Safety Report 6540979-5 (Version None)
Quarter: 2010Q1

REPORT INFORMATION
  Report Type: 
  Country: None (occurrence: None)
  Receive Date: 20100118
  Receipt Date: 20100107
  Transmission Date: 20100710
  Serious: Yes (Other)
  Sender: FDA-Public Use
  Company Number: PHHY2010BR01032

PATIENT
  Sex: Female

DRUGS (3)
  1. DIOVAN AMLO FIX [Suspect]
     Indication: HYPERTENSION
     Dosage: 1 TABLET (160/5MG) DAILY
     Route: 048
  2. NATRILIX [Concomitant]
     Indication: HYPERTENSION
     Dosage: 1 TABLET (1.5MG) DAILY
     Route: 048
  3. FLUOXETINE [Concomitant]
     Indication: DEPRESSION
     Dosage: 1 TABLET (20 MG) DAILY
     Route: 048

REACTIONS (4)
  - DISCOMFORT [None]
  - MACULAR HOLE [None]
  - SURGERY [None]
  - VISUAL ACUITY REDUCED [None]
